FAERS Safety Report 10444584 (Version 1)
Quarter: 2014Q3

REPORT INFORMATION
  Report Type: Spontaneous
  Country: US (occurrence: None)
  Receive Date: 20140909
  Receipt Date: 20140909
  Transmission Date: 20150326
  Serious: Yes (Life-Threatening)
  Sender: FDA-Public Use
  Company Number: None

PATIENT
  Age: 8 Year
  Sex: Female
  Weight: 34.02 kg

DRUGS (1)
  1. CLOSYS [Suspect]
     Active Substance: SODIUM FLUORIDE
     Indication: BREATH ODOUR

REACTIONS (4)
  - Pruritus [None]
  - Lip swelling [None]
  - Urticaria [None]
  - Throat tightness [None]

NARRATIVE: CASE EVENT DATE: 20140905
